FAERS Safety Report 7180603-4 (Version None)
Quarter: 2010Q4

REPORT INFORMATION
  Report Type: 
  Country: None (occurrence: None)
  Receive Date: 20101221
  Receipt Date: 20101213
  Transmission Date: 20110411
  Serious: Yes (Other)
  Sender: FDA-Public Use
  Company Number: US-ABBOTT-10P-163-0670696-00

PATIENT
  Sex: Male
  Weight: 84.898 kg

DRUGS (4)
  1. HUMIRA [Suspect]
     Indication: CROHN'S DISEASE
     Dates: start: 20100729
  2. PERCOCET [Suspect]
  3. ASACOL [Concomitant]
     Indication: CROHN'S DISEASE
  4. PREDNISONE [Concomitant]
     Indication: CROHN'S DISEASE

REACTIONS (7)
  - DEVICE MALFUNCTION [None]
  - FALL [None]
  - HYPOPHAGIA [None]
  - INJECTION SITE PAIN [None]
  - INJECTION SITE URTICARIA [None]
  - WEIGHT DECREASED [None]
  - WRIST FRACTURE [None]
